FAERS Safety Report 13868351 (Version 1)
Quarter: 2017Q3

REPORT INFORMATION
  Report Type: Spontaneous
  Country: US (occurrence: US)
  Receive Date: 20170815
  Receipt Date: 20170815
  Transmission Date: 20171127
  Serious: No
  Sender: FDA-Public Use
  Company Number: US-B.I. PHARMACEUTICALS,INC./RIDGEFIELD-2017-BI-044162

PATIENT
  Age: 79 Year
  Sex: Female

DRUGS (3)
  1. PRADAXA [Suspect]
     Active Substance: DABIGATRAN ETEXILATE MESYLATE
     Indication: ATRIAL FIBRILLATION
     Dosage: STRENGTH: 150 MG; FORMULATION: CAPSULE; ADMINISTRATION CORRECT? YES; ACTION TAKEN: DOSE NOT CHANGED
     Route: 048
     Dates: start: 20170726
  2. LATANOPREST [Concomitant]
     Indication: GLAUCOMA
     Dosage: UNIT DOSE: ONE DROP IN EACH EYE AT NIGHT
     Route: 050
  3. RAMAPRIL [Concomitant]
     Indication: HYPERTENSION
     Dosage: STRENGTH: 5MG; FORMULATION: TABLET
     Route: 048

REACTIONS (6)
  - Asthenia [Not Recovered/Not Resolved]
  - Diarrhoea [Not Recovered/Not Resolved]
  - Haemorrhagic diathesis [Not Recovered/Not Resolved]
  - Increased tendency to bruise [Not Recovered/Not Resolved]
  - Gait disturbance [Not Recovered/Not Resolved]
  - Chest pain [Not Recovered/Not Resolved]

NARRATIVE: CASE EVENT DATE: 20170726
